FAERS Safety Report 18247390 (Version 2)
Quarter: 2020Q4

REPORT INFORMATION
  Report Type: Report from Study
  Country: CA (occurrence: CA)
  Receive Date: 20200909
  Receipt Date: 20201007
  Transmission Date: 20210113
  Serious: Yes (Hospitalization, Other)
  Sender: FDA-Public Use
  Company Number: PHHY2017CA137892

PATIENT
  Age: 79 Year
  Sex: Male

DRUGS (5)
  1. COVERSYL PLUS [Concomitant]
     Active Substance: INDAPAMIDE\PERINDOPRIL
     Indication: HYPERTENSION
     Dosage: UNK
     Route: 065
  2. SANDOSTATIN LAR DEPOT [Suspect]
     Active Substance: OCTREOTIDE ACETATE
  3. NORVASC [Concomitant]
     Active Substance: AMLODIPINE BESYLATE
     Indication: HYPERTENSION
     Dosage: 2.5 MG, QD AT NIGHT
     Route: 065
  4. SANDOSTATIN LAR DEPOT [Suspect]
     Active Substance: OCTREOTIDE ACETATE
  5. SANDOSTATIN LAR DEPOT [Suspect]
     Active Substance: OCTREOTIDE ACETATE
     Indication: CARCINOID TUMOUR
     Dosage: 30 MG, QMO (EVERY 4 WEEKS)
     Route: 030
     Dates: start: 20170914

REACTIONS (27)
  - Blood pressure increased [Unknown]
  - Fall [Unknown]
  - Injection site pain [Not Recovered/Not Resolved]
  - Back disorder [Unknown]
  - Nasopharyngitis [Recovering/Resolving]
  - Rhinitis [Recovering/Resolving]
  - Back injury [Unknown]
  - Gait disturbance [Unknown]
  - Pharyngitis [Recovering/Resolving]
  - Muscle spasms [Unknown]
  - Pain [Unknown]
  - Hyperglycaemia [Unknown]
  - Abdominal pain upper [Unknown]
  - Body temperature increased [Unknown]
  - Hypotension [Unknown]
  - Nervous system disorder [Unknown]
  - Oropharyngeal pain [Unknown]
  - Back pain [Unknown]
  - Feeding disorder [Unknown]
  - Heart rate increased [Unknown]
  - Blood pressure systolic increased [Unknown]
  - General physical health deterioration [Unknown]
  - Asthenia [Unknown]
  - Blood insulin increased [Not Recovered/Not Resolved]
  - Cough [Recovering/Resolving]
  - Malaise [Recovering/Resolving]
  - Blood glucose fluctuation [Unknown]

NARRATIVE: CASE EVENT DATE: 2017
